FAERS Safety Report 23612014 (Version 4)
Quarter: 2024Q4

REPORT INFORMATION
  Report Type: Spontaneous
  Country: JP (occurrence: JP)
  Receive Date: 20240308
  Receipt Date: 20241014
  Transmission Date: 20250114
  Serious: Yes (Other)
  Sender: OTSUKA
  Company Number: JP-OTSUKA-2024_005957

PATIENT
  Age: 84 Year
  Sex: Male

DRUGS (4)
  1. ABILIFY [Suspect]
     Active Substance: ARIPIPRAZOLE
     Indication: Hallucination
     Dosage: 1.5 MG/DAY
     Route: 048
     Dates: start: 20231124
  2. ABILIFY [Suspect]
     Active Substance: ARIPIPRAZOLE
     Indication: Delusion
  3. CARBIDOPA\LEVODOPA [Suspect]
     Active Substance: CARBIDOPA\LEVODOPA
     Indication: Product used for unknown indication
     Dosage: 100MG/DAY
     Route: 048
  4. ARICEPT [Concomitant]
     Active Substance: DONEPEZIL HYDROCHLORIDE
     Indication: Product used for unknown indication
     Dosage: 5MG/DAY
     Route: 048

REACTIONS (1)
  - Open angle glaucoma [Recovering/Resolving]

NARRATIVE: CASE EVENT DATE: 20240301
